FAERS Safety Report 7853449-9 (Version None)
Quarter: 2011Q3

REPORT INFORMATION
  Report Type: 
  Country: None (occurrence: None)
  Receive Date: 20110915
  Receipt Date: 20110622
  Transmission Date: 20111222
  Serious: Yes (Other)
  Sender: FDA-Public Use
  Company Number: 2011029001

PATIENT
  Sex: Female
  Weight: 46 kg

DRUGS (4)
  1. PRIVIGEN [Suspect]
     Route: 042
  2. CELLCEPT [Concomitant]
  3. FLUDROCORTISONE ACETATE [Concomitant]
  4. PRIVIGEN [Suspect]
     Indication: SCLERODERMA
     Dosage: SEE IMAGE
     Route: 042
     Dates: start: 20110617, end: 20110620

REACTIONS (5)
  - FIBRIN D DIMER INCREASED [None]
  - BLOOD BILIRUBIN INCREASED [None]
  - CHROMATURIA [None]
  - HAEMOLYTIC ANAEMIA [None]
  - HAEMOLYSIS [None]
